FAERS Safety Report 5866469-0 (Version None)
Quarter: 2008Q3

REPORT INFORMATION
  Report Type: 
  Country: None (occurrence: None)
  Receive Date: 20080902
  Receipt Date: 20080823
  Transmission Date: 20090109
  Serious: Yes (Other)
  Sender: FDA-Public Use
  Company Number: PHHY2008SK19033

PATIENT
  Age: 76 Year
  Sex: Male

DRUGS (13)
  1. RASILEZ [Suspect]
     Dosage: 300 MG
  2. EBRANTIL [Concomitant]
  3. SANDIMMUNE [Concomitant]
  4. DIOVAN HCT [Concomitant]
  5. LACIPIL [Concomitant]
     Dosage: 4 MG
  6. LESCOL XL [Concomitant]
  7. MILURIT [Concomitant]
  8. EUPHYLLIN                               /GFR/ [Concomitant]
  9. EZETROL [Concomitant]
  10. IPATON [Concomitant]
  11. VEROSPIRON [Concomitant]
  12. FUROSEMIDE [Concomitant]
  13. KETOSTERIL [Concomitant]

REACTIONS (4)
  - ASTHENIA [None]
  - ATRIOVENTRICULAR BLOCK SECOND DEGREE [None]
  - BRADYCARDIA [None]
  - HYPONATRAEMIA [None]
